FAERS Safety Report 17020731 (Version 1)
Quarter: 2019Q4

REPORT INFORMATION
  Report Type: Spontaneous
  Country: CA (occurrence: CA)
  Receive Date: 20191112
  Receipt Date: 20191112
  Transmission Date: 20200122
  Serious: Yes (Other)
  Sender: FDA-Public Use
  Company Number: CA-PFIZER INC-2019486048

PATIENT
  Sex: Male
  Weight: 105 kg

DRUGS (1)
  1. IRINOTECAN HCL [Suspect]
     Active Substance: IRINOTECAN HYDROCHLORIDE
     Dosage: 392 MG, UNK
     Route: 065

REACTIONS (2)
  - Hypoaesthesia oral [Unknown]
  - Hypoaesthesia [Unknown]
